FAERS Safety Report 8260219-9 (Version None)
Quarter: 2012Q2

REPORT INFORMATION
  Report Type: 
  Country: None (occurrence: None)
  Receive Date: 20120404
  Receipt Date: 20120402
  Transmission Date: 20120825
  Serious: Yes (Other)
  Sender: FDA-Public Use
  Company Number: US-ELI_LILLY_AND_COMPANY-US201110005423

PATIENT
  Age: 80 Year
  Sex: Female

DRUGS (10)
  1. GLIPIZIDE [Concomitant]
  2. BYETTA [Suspect]
     Dosage: 10 UG, BID
     Route: 058
     Dates: end: 20110801
  3. SIMVASTATIN [Concomitant]
  4. RANITIDINE [Concomitant]
  5. BYETTA [Suspect]
     Dosage: 5 UG, BID
     Route: 058
  6. BYETTA [Suspect]
     Dosage: 10 UG, BID
     Route: 058
     Dates: start: 20100506
  7. BYETTA [Suspect]
     Indication: TYPE 2 DIABETES MELLITUS
     Dosage: 5 UG, BID
     Route: 058
     Dates: start: 20100208, end: 20110801
  8. ARIMIDEX [Concomitant]
  9. ATENOLOL [Concomitant]
  10. LISINOPRIL [Concomitant]

REACTIONS (3)
  - PANCREATIC CARCINOMA [None]
  - INTENTIONAL DRUG MISUSE [None]
  - NAUSEA [None]
